FAERS Safety Report 4689645-1 (Version None)
Quarter: 2005Q2

REPORT INFORMATION
  Report Type: 
  Country: None (occurrence: None)
  Receive Date: 20050607
  Receipt Date: 20050224
  Transmission Date: 20051028
  Serious: Yes (Other)
  Sender: FDA-Public Use
  Company Number: 2005_000012

PATIENT
  Age: 43 Year
  Sex: Female

DRUGS (5)
  1. DEPOCYT [Suspect]
     Indication: METASTASES TO MENINGES
     Dosage: 50 MG; X1; INTRATHECAL
     Route: 037
     Dates: start: 20041115, end: 20041115
  2. TAXOL [Suspect]
     Indication: BREAST CANCER METASTATIC
  3. CARBOPLATIN [Suspect]
     Indication: BREAST CANCER METASTATIC
  4. SOLU-DECORTIN-H [Concomitant]
  5. DEXAMETHASONE [Concomitant]

REACTIONS (1)
  - BONE MARROW DEPRESSION [None]
